FAERS Safety Report 13740612 (Version 2)
Quarter: 2017Q3

REPORT INFORMATION
  Report Type: Report from Study
  Country: US (occurrence: US)
  Receive Date: 20170711
  Receipt Date: 20170816
  Transmission Date: 20171127
  Serious: Yes (Life-Threatening, Hospitalization)
  Sender: FDA-Public Use
  Company Number: US-PFIZER INC-2017294587

PATIENT
  Age: 39 Year
  Sex: Female
  Weight: 43 kg

DRUGS (16)
  1. METHYLPREDNISOLONE SODIUM SUCCINATE. [Suspect]
     Active Substance: METHYLPREDNISOLONE SODIUM SUCCINATE
     Indication: GRAFT VERSUS HOST DISEASE
     Dosage: 50 MG, Q24HOURS
     Route: 042
     Dates: start: 20170502, end: 20170508
  2. INCB018424 [Suspect]
     Active Substance: RUXOLITINIB
     Indication: GRAFT VERSUS HOST DISEASE
     Dosage: 5 MG, BID
     Route: 048
     Dates: start: 20170224, end: 20170228
  3. VICODIN [Concomitant]
     Active Substance: ACETAMINOPHEN\HYDROCODONE BITARTRATE
  4. PREDNISONE. [Suspect]
     Active Substance: PREDNISONE
     Indication: GRAFT VERSUS HOST DISEASE
     Dosage: 50 MG, Q 24 HOURS
     Route: 048
     Dates: start: 20170509, end: 20170516
  5. PREDNISONE. [Suspect]
     Active Substance: PREDNISONE
     Dosage: 30 MG, Q 24 HOURS
     Route: 048
     Dates: start: 20170523, end: 20170524
  6. INCB018424 [Suspect]
     Active Substance: RUXOLITINIB
     Dosage: 10 MG, BID
     Route: 048
     Dates: start: 20170228, end: 20170321
  7. INCB018424 [Suspect]
     Active Substance: RUXOLITINIB
     Dosage: 5 MG, BID
     Route: 048
     Dates: start: 20170321, end: 20170324
  8. INCB018424 [Suspect]
     Active Substance: RUXOLITINIB
     Dosage: 10 MG, BID
     Route: 048
     Dates: start: 20170324, end: 20170717
  9. PREDNISONE. [Suspect]
     Active Substance: PREDNISONE
     Dosage: 40 MG, Q 24 HOURS
     Route: 048
     Dates: start: 20170525, end: 20170529
  10. ATIVAN [Concomitant]
     Active Substance: LORAZEPAM
  11. INCB018424 [Suspect]
     Active Substance: RUXOLITINIB
     Dosage: 5 MG, BID
     Route: 048
     Dates: start: 20170717
  12. TYLENOL [Concomitant]
     Active Substance: ACETAMINOPHEN
  13. PREDNISONE. [Suspect]
     Active Substance: PREDNISONE
     Dosage: 40 MG, Q 24 HOURS
     Route: 048
     Dates: start: 20170516, end: 20170522
  14. PREDNISONE. [Suspect]
     Active Substance: PREDNISONE
     Dosage: 35 MG, Q 24 HOURS
     Route: 048
     Dates: start: 20170530, end: 20170607
  15. MARIBAVIR [Suspect]
     Active Substance: MARIBAVIR
     Indication: CYTOMEGALOVIRUS VIRAEMIA
     Dosage: 400 MG, BID
     Dates: start: 20170630, end: 20170714
  16. METHADONE [Concomitant]
     Active Substance: METHADONE HYDROCHLORIDE

REACTIONS (5)
  - Failure to thrive [Not Recovered/Not Resolved]
  - Delirium [Not Recovered/Not Resolved]
  - Bacteraemia [Not Recovered/Not Resolved]
  - Lower gastrointestinal haemorrhage [Not Recovered/Not Resolved]
  - Pneumatosis intestinalis [Not Recovered/Not Resolved]

NARRATIVE: CASE EVENT DATE: 20170602
